FAERS Safety Report 16782479 (Version 17)
Quarter: 2020Q4

REPORT INFORMATION
  Report Type: Other
  Country: DE (occurrence: DE)
  Receive Date: 20190906
  Receipt Date: 20201023
  Transmission Date: 20210113
  Serious: Yes (Other)
  Sender: FDA-Public Use
  Company Number: DE-ASCEND THERAPEUTICS US, LLC-2074123

PATIENT
  Age: 37 Year
  Sex: Female
  Weight: 37 kg

DRUGS (14)
  1. FLUVOXAMINE?DRUG USE FOR UNKNOWN INDICATION [Concomitant]
  2. TOLTERODIN (TOLTERODINE L-TARTATE)?DRUG USE FOR UNKNOWN INDICATION [Concomitant]
  3. OCREVUS [Suspect]
     Active Substance: OCRELIZUMAB
     Route: 042
     Dates: start: 20200706
  4. FERRUM (FERROUS GLUCONATE) ?DRUG USE FOR UNKNOWN INDICATION [Concomitant]
  5. OCRELIZUMAB (OCRELIZUMAB)?RELAPSING MULTIPLE SCLEROSIS?SECONDARY PROGR [Suspect]
     Active Substance: OCRELIZUMAB
     Route: 042
     Dates: start: 20200106
  6. ESTROGEL [Suspect]
     Active Substance: ESTRADIOL
     Indication: OSTEOPOROSIS
     Route: 065
     Dates: end: 20190812
  7. UTROGEST (PROGESTERONE)?HORMONE SUPPLEMENTARY TREATMENT- TOGETHER WITH [Suspect]
     Active Substance: PROGESTERONE
     Dates: start: 20190701
  8. UTROGEST (PROGESTERONE)?HORMONE SUPPLEMENTARY TREATMENT- TOGETHER WITH [Suspect]
     Active Substance: PROGESTERONE
  9. ESTROGEL [Suspect]
     Active Substance: ESTRADIOL
  10. OCRELIZUMAB (OCRELIZUMAB)?RELAPSING MULTIPLE SCLEROSIS?SECONDARY PROGR [Suspect]
     Active Substance: OCRELIZUMAB
     Route: 042
     Dates: start: 20190701
  11. ESTRADIOL. [Suspect]
     Active Substance: ESTRADIOL
  12. GYNOKADIN (ESTRADIOL HEMIHYDRATE) (GEL)?HORMONE SUPPLEMENTARY TREATMEN [Suspect]
     Active Substance: ESTRADIOL HEMIHYDRATE
  13. FOLINIC ACID (FOLINIC ACID?DRUG USE FOR UNKNOWN INDICATION [Concomitant]
  14. CALCIUM ?DRUG USE FOR UNKNOWN INDICATION?CHEWABLE TABLETS TOGETHER WIT [Concomitant]

REACTIONS (48)
  - Muscular weakness [Not Recovered/Not Resolved]
  - Fatigue [Recovered/Resolved]
  - Visual impairment [Recovered/Resolved]
  - Insomnia [Recovered/Resolved]
  - Gait disturbance [Recovered/Resolved]
  - Mucosal dryness [Not Recovered/Not Resolved]
  - Oropharyngeal pain [Not Recovered/Not Resolved]
  - Constipation [Recovered/Resolved]
  - Arthralgia [Recovered/Resolved]
  - Myalgia [Not Recovered/Not Resolved]
  - Coordination abnormal [Not Recovered/Not Resolved]
  - Circulatory collapse [Recovered/Resolved]
  - Limb discomfort [Recovering/Resolving]
  - Fluid retention [Recovering/Resolving]
  - Arthralgia [Not Recovered/Not Resolved]
  - Nasopharyngitis [Recovered/Resolved]
  - Limb discomfort [Recovered/Resolved]
  - Musculoskeletal stiffness [Recovered/Resolved]
  - Pain in extremity [Recovered/Resolved]
  - Limb discomfort [Recovered/Resolved]
  - Cardiovascular insufficiency [Not Recovered/Not Resolved]
  - Multiple sclerosis relapse [Unknown]
  - Fatigue [Not Recovered/Not Resolved]
  - Migraine [Recovered/Resolved]
  - Weight decreased [Recovered/Resolved]
  - Oedema [Unknown]
  - Arthralgia [Recovering/Resolving]
  - Throat irritation [Recovered/Resolved]
  - Nerve compression [Unknown]
  - Vision blurred [Recovered/Resolved]
  - Urinary incontinence [Not Recovered/Not Resolved]
  - White blood cell count decreased [Recovered/Resolved]
  - Paraesthesia [Recovering/Resolving]
  - Chest pain [Recovered/Resolved]
  - Panic attack [Not Recovered/Not Resolved]
  - Anxiety [Not Recovered/Not Resolved]
  - Skin burning sensation [Recovered/Resolved]
  - Visual field defect [Recovered/Resolved]
  - Back pain [Recovering/Resolving]
  - Salivary hypersecretion [Recovered/Resolved]
  - Blood pressure decreased [Recovered/Resolved]
  - Depression [Recovered/Resolved]
  - Nausea [Not Recovered/Not Resolved]
  - Food poisoning [Recovered/Resolved]
  - Nail bed inflammation [Recovered/Resolved]
  - Psoriasis [Recovered/Resolved]
  - Headache [Recovered/Resolved]
  - Depression [None]

NARRATIVE: CASE EVENT DATE: 20190701
